FAERS Safety Report 5026494-9 (Version None)
Quarter: 2006Q2

REPORT INFORMATION
  Report Type: 
  Country: None (occurrence: None)
  Receive Date: 20060615
  Receipt Date: 20060404
  Transmission Date: 20061013
  Serious: Yes (Other)
  Sender: FDA-Public Use
  Company Number: PHFR2006GB01355

PATIENT
  Age: 33 Year
  Sex: Male

DRUGS (1)
  1. CLOZARIL [Suspect]
     Indication: SCHIZOPHRENIA
     Route: 048
     Dates: start: 20051112

REACTIONS (5)
  - CARDIAC MURMUR [None]
  - CARDIOMYOPATHY [None]
  - ECHOCARDIOGRAM ABNORMAL [None]
  - TACHYCARDIA [None]
  - VENTRICULAR DYSFUNCTION [None]
